FAERS Safety Report 24332645 (Version 2)
Quarter: 2025Q1

REPORT INFORMATION
  Report Type: Spontaneous
  Country: CA (occurrence: CA)
  Receive Date: 20240918
  Receipt Date: 20250324
  Transmission Date: 20250409
  Serious: Yes (Other)
  Sender: SANDOZ
  Company Number: CA-002147023-NVSC2021CA274775

PATIENT
  Age: 52 Year
  Sex: Female

DRUGS (27)
  1. COLCHICINE [Suspect]
     Active Substance: COLCHICINE
     Indication: Product used for unknown indication
     Route: 048
  2. DICLOFENAC [Suspect]
     Active Substance: DICLOFENAC
     Indication: Product used for unknown indication
     Route: 048
  3. ERELZI [Suspect]
     Active Substance: ETANERCEPT-SZZS
     Indication: Ankylosing spondylitis
     Dosage: 50 MG, QW (1 EVERY 1 WEEKS)
     Route: 058
  4. LEFLUNOMIDE [Suspect]
     Active Substance: LEFLUNOMIDE
     Indication: Product used for unknown indication
     Route: 065
  5. LEFLUNOMIDE [Suspect]
     Active Substance: LEFLUNOMIDE
     Route: 065
  6. METHOTREXATE [Suspect]
     Active Substance: METHOTREXATE
     Indication: Product used for unknown indication
     Route: 058
  7. METHOTREXATE [Suspect]
     Active Substance: METHOTREXATE
     Route: 048
  8. METHOTREXATE [Suspect]
     Active Substance: METHOTREXATE
     Route: 048
  9. METHOTREXATE [Suspect]
     Active Substance: METHOTREXATE
     Route: 058
  10. METHOTREXATE [Suspect]
     Active Substance: METHOTREXATE
     Indication: Product used for unknown indication
     Route: 048
  11. ARAVA [Concomitant]
     Active Substance: LEFLUNOMIDE
     Indication: Product used for unknown indication
     Route: 048
  12. DESOXIMETASONE [Concomitant]
     Active Substance: DESOXIMETASONE
     Indication: Product used for unknown indication
     Route: 058
  13. DESOXIMETASONE [Concomitant]
     Active Substance: DESOXIMETASONE
     Route: 058
  14. GOLD [Concomitant]
     Active Substance: GOLD
     Indication: Product used for unknown indication
     Route: 030
  15. INDOMETHACIN [Concomitant]
     Active Substance: INDOMETHACIN
     Indication: Product used for unknown indication
     Route: 065
  16. INDOMETHACIN [Concomitant]
     Active Substance: INDOMETHACIN
     Route: 065
  17. INDOMETHACIN [Concomitant]
     Active Substance: INDOMETHACIN
     Route: 065
  18. INDOMETHACIN [Concomitant]
     Active Substance: INDOMETHACIN
     Route: 065
  19. INDOMETHACIN [Concomitant]
     Active Substance: INDOMETHACIN
     Route: 065
  20. NAPROXEN [Concomitant]
     Active Substance: NAPROXEN
     Indication: Product used for unknown indication
     Route: 065
  21. NAPROXEN [Concomitant]
     Active Substance: NAPROXEN
     Route: 065
  22. NAPROXEN [Concomitant]
     Active Substance: NAPROXEN
     Route: 065
  23. NAPROXEN [Concomitant]
     Active Substance: NAPROXEN
     Route: 065
  24. PREDNISONE [Concomitant]
     Active Substance: PREDNISONE
     Indication: Product used for unknown indication
     Route: 048
  25. PREDNISONE [Concomitant]
     Active Substance: PREDNISONE
     Route: 048
  26. VIOXX [Concomitant]
     Active Substance: ROFECOXIB
     Indication: Product used for unknown indication
     Route: 065
  27. VIOXX [Concomitant]
     Active Substance: ROFECOXIB
     Route: 065

REACTIONS (7)
  - Crohn^s disease [Unknown]
  - C-reactive protein abnormal [Unknown]
  - Episcleritis [Unknown]
  - Uveitis [Unknown]
  - Product use issue [Unknown]
  - Drug intolerance [Unknown]
  - Drug ineffective [Unknown]
